FAERS Safety Report 11059099 (Version 1)
Quarter: 2015Q2

REPORT INFORMATION
  Report Type: Spontaneous
  Country: US (occurrence: None)
  Receive Date: 20150422
  Receipt Date: 20150422
  Transmission Date: 20150821
  Serious: Yes (Hospitalization)
  Sender: FDA-Public Use
  Company Number: None

PATIENT
  Age: 80 Year
  Sex: Male
  Weight: 72.9 kg

DRUGS (2)
  1. ROSUVASTATIN [Suspect]
     Active Substance: ROSUVASTATIN
     Indication: HYPERLIPIDAEMIA
     Route: 048
     Dates: start: 20120227, end: 20130201
  2. PRAVASTATIN [Suspect]
     Active Substance: PRAVASTATIN\PRAVASTATIN SODIUM
     Indication: HYPERLIPIDAEMIA
     Route: 048
     Dates: start: 20140418, end: 20140716

REACTIONS (8)
  - Abdominal pain [None]
  - Chest pain [None]
  - Nausea [None]
  - Hepatitis [None]
  - Gallbladder disorder [None]
  - Aspartate aminotransferase increased [None]
  - Alanine aminotransferase increased [None]
  - Biliary dilatation [None]

NARRATIVE: CASE EVENT DATE: 20140729
